FAERS Safety Report 18544883 (Version 3)
Quarter: 2021Q1

REPORT INFORMATION
  Report Type: Report from Study
  Country: US (occurrence: US)
  Receive Date: 20201125
  Receipt Date: 20210115
  Transmission Date: 20210419
  Serious: No
  Sender: FDA-Public Use
  Company Number: NVSC2020US309567

PATIENT
  Sex: Male

DRUGS (1)
  1. COSENTYX [Suspect]
     Active Substance: SECUKINUMAB
     Indication: PSORIASIS
     Dosage: UNK UNK, Q4W
     Route: 058
     Dates: start: 20200925

REACTIONS (5)
  - Skin discolouration [Recovering/Resolving]
  - Sluggishness [Recovering/Resolving]
  - Headache [Recovered/Resolved]
  - Dry skin [Unknown]
  - Weight increased [Unknown]
